FAERS Safety Report 13517056 (Version 3)
Quarter: 2017Q2

REPORT INFORMATION
  Report Type: Spontaneous
  Country: GB (occurrence: GB)
  Receive Date: 20170505
  Receipt Date: 20170606
  Transmission Date: 20170830
  Serious: Yes (Other)
  Sender: FDA-Public Use
  Company Number: GB-BEH-2017079961

PATIENT
  Age: 4 Year
  Sex: Male

DRUGS (1)
  1. HIZENTRA [Suspect]
     Active Substance: HUMAN IMMUNOGLOBULIN G
     Indication: BRUTON^S AGAMMAGLOBULINAEMIA
     Dosage: UNK
     Route: 065
     Dates: start: 2011

REACTIONS (6)
  - Diarrhoea [Recovered/Resolved]
  - Vomiting [Recovered/Resolved]
  - Inflammatory bowel disease [Not Recovered/Not Resolved]
  - Growth retardation [Unknown]
  - Diarrhoea [Not Recovered/Not Resolved]
  - Growth retardation [Unknown]

NARRATIVE: CASE EVENT DATE: 201111
